FAERS Safety Report 26127788 (Version 1)
Quarter: 2025Q4

REPORT INFORMATION
  Report Type: Spontaneous
  Country: US (occurrence: US)
  Receive Date: 20251206
  Receipt Date: 20251206
  Transmission Date: 20260118
  Serious: No
  Sender: SUNOVION
  Company Number: US-SMPA-2025SPA015070

PATIENT
  Age: 76 Year
  Sex: Female
  Weight: 112.93 kg

DRUGS (14)
  1. GEMTESA [Suspect]
     Active Substance: VIBEGRON
     Indication: Hypertonic bladder
     Dosage: 75 MG, QD
     Route: 048
  2. FUROSEMIDE [Concomitant]
     Active Substance: FUROSEMIDE
     Indication: Peripheral swelling
     Dosage: 20 MG, BID
  3. PAROXETINE [Concomitant]
     Active Substance: PAROXETINE
     Dosage: 40 MG, QD
  4. ROSUVASTATIN [Concomitant]
     Active Substance: ROSUVASTATIN
     Indication: Blood pressure abnormal
     Dosage: 40 MG, QD
  5. MECLIZINE [Concomitant]
     Active Substance: MECLIZINE HYDROCHLORIDE
     Indication: Dizziness
     Dosage: 25 MG, TID
  6. DONEPEZIL HYDROCHLORIDE [Concomitant]
     Active Substance: DONEPEZIL HYDROCHLORIDE
     Indication: Dementia
     Dosage: 10 MG, TAKEN AT NIGHT BEFORE BED
  7. LISINOPRIL [Concomitant]
     Active Substance: LISINOPRIL
     Dosage: 40 MG, QD
  8. SUCRALFATE [Concomitant]
     Active Substance: SUCRALFATE
     Indication: Abdominal discomfort
     Dosage: 1 G, TID
  9. POTASSIUM [Concomitant]
     Active Substance: POTASSIUM
     Indication: Mineral supplementation
     Dosage: 20 MEQ, BID
  10. Equate [Concomitant]
     Indication: Mineral supplementation
     Dosage: ONE, ONCE A DAY
  11. TRAZODONE [Concomitant]
     Active Substance: TRAZODONE HYDROCHLORIDE
     Indication: Sleep disorder
     Dosage: ONE AT NIGHTTIME
  12. MEMANTINE [Concomitant]
     Active Substance: MEMANTINE
     Indication: Dementia
     Dosage: ONE IN THE MORNING AND ONE AT NIGHT
  13. WARFARIN [Concomitant]
     Active Substance: WARFARIN
     Dosage: ON MONDAY, WEDNESDAY, AND FRIDAY 2 HALF PILLS, BUT EVERY OTHER DAY ONLY 2 PILLS
  14. CLEARLAX [Concomitant]
     Active Substance: POLYETHYLENE GLYCOL 3350
     Indication: Abdominal discomfort
     Dosage: UNK

REACTIONS (3)
  - Infrequent bowel movements [Unknown]
  - Diarrhoea [Unknown]
  - Drug ineffective [Unknown]
